FAERS Safety Report 9982009 (Version 1)
Quarter: 2014Q1

REPORT INFORMATION
  Report Type: Spontaneous
  Country: US (occurrence: None)
  Receive Date: 20140127
  Receipt Date: 20140127
  Transmission Date: 20141002
  Serious: Yes (Other)
  Sender: FDA-Public Use
  Company Number: 1226734

PATIENT
  Sex: 0

DRUGS (2)
  1. RITUXAN (RITUXIMAB) [Suspect]
     Indication: B-CELL LYMPHOMA
  2. RITUXAN (RITUXIMAB) [Suspect]
     Indication: OFF LABEL USE

REACTIONS (3)
  - Blood count abnormal [None]
  - Pancytopenia [None]
  - Neutropenia [None]
